FAERS Safety Report 6301443-1 (Version None)
Quarter: 2009Q3

REPORT INFORMATION
  Report Type: 
  Country: None (occurrence: None)
  Receive Date: 20090807
  Receipt Date: 20090730
  Transmission Date: 20100115
  Serious: Yes (Hospitalization, Other)
  Sender: FDA-Public Use
  Company Number: CA-ABBOTT-09P-028-0589038-00

PATIENT
  Sex: Male
  Weight: 63.56 kg

DRUGS (3)
  1. HUMIRA [Suspect]
     Indication: CROHN'S DISEASE
     Route: 058
     Dates: start: 20040101
  2. PREVACID [Concomitant]
     Indication: DRUG USE FOR UNKNOWN INDICATION
  3. DILAUDID [Concomitant]
     Indication: DRUG USE FOR UNKNOWN INDICATION

REACTIONS (2)
  - PANCREATITIS [None]
  - PANCREATITIS RELAPSING [None]
